FAERS Safety Report 18984939 (Version 4)
Quarter: 2021Q2

REPORT INFORMATION
  Report Type: Spontaneous
  Country: US (occurrence: US)
  Receive Date: 20210309
  Receipt Date: 20210614
  Transmission Date: 20210717
  Serious: No
  Sender: FDA-Public Use
  Company Number: NVSC2021US039519

PATIENT
  Age: 80 Year
  Sex: Female

DRUGS (3)
  1. XIIDRA [Suspect]
     Active Substance: LIFITEGRAST
     Indication: DRY EYE
     Dosage: 5 %, BID  (BOTH EYES)
     Route: 065
     Dates: start: 20210210, end: 20210331
  2. CARTIA XT [Concomitant]
     Active Substance: DILTIAZEM HYDROCHLORIDE
     Indication: PRODUCT USED FOR UNKNOWN INDICATION
     Dosage: UNK
     Route: 065
  3. BEVACIZUMAB. [Suspect]
     Active Substance: BEVACIZUMAB
     Indication: NEOVASCULAR AGE-RELATED MACULAR DEGENERATION
     Dosage: 10 MG
     Route: 065

REACTIONS (8)
  - Eye irritation [Recovered/Resolved]
  - Vision blurred [Unknown]
  - Dysgeusia [Unknown]
  - Condition aggravated [Unknown]
  - Headache [Recovering/Resolving]
  - Lip swelling [Unknown]
  - Oral discomfort [Unknown]
  - Swollen tongue [Unknown]

NARRATIVE: CASE EVENT DATE: 20210331
